FAERS Safety Report 10043644 (Version 2)
Quarter: 2014Q1

REPORT INFORMATION
  Report Type: Spontaneous
  Country: US (occurrence: US)
  Receive Date: 20140328
  Receipt Date: 20140328
  Transmission Date: 20141002
  Serious: No
  Sender: FDA-Public Use
  Company Number: US-MYLANLABS-2013S1013109

PATIENT
  Age: 69 Year
  Sex: Female
  Weight: 64.86 kg

DRUGS (13)
  1. VERAPAMIL HYDROCHLORIDE [Suspect]
     Indication: HEART RATE IRREGULAR
     Dosage: AT 9PM WITH FOOD
     Route: 048
     Dates: start: 20111219
  2. VERAPAMIL HYDROCHLORIDE [Suspect]
     Indication: HEART RATE INCREASED
     Dosage: AT 9PM WITH FOOD
     Route: 048
     Dates: start: 20111219
  3. VERAPAMIL HYDROCHLORIDE [Suspect]
     Indication: SUPRAVENTRICULAR TACHYCARDIA
     Dosage: AT 9PM WITH FOOD
     Route: 048
     Dates: start: 20111219
  4. LESCOL-EXEL [Concomitant]
  5. LEVOTHYROXINE [Concomitant]
     Dosage: TAKE 1 DAY ONE, 2 DAILY ON DAYS 2 AND 3, THEN REPEAT.
  6. ZANTAC [Concomitant]
     Dosage: TAKE 2 X 150MG BID.
  7. ZETIA [Concomitant]
  8. LYRICA [Concomitant]
     Dosage: TAKING 25MG AND 50MG DAILY.
  9. MONTELUKAST [Concomitant]
  10. VITAMIN D [Concomitant]
  11. CENTRUM SILVER [Concomitant]
     Dosage: TAKING ONE TABLET DAILY
  12. VOLTAREN [Concomitant]
     Dosage: CREAM
  13. TYLENOL [Concomitant]

REACTIONS (2)
  - Dysgeusia [Recovering/Resolving]
  - Foreign body [Not Recovered/Not Resolved]
